FAERS Safety Report 24885286 (Version 1)
Quarter: 2025Q1

REPORT INFORMATION
  Report Type: Spontaneous
  Country: DE (occurrence: DE)
  Receive Date: 20250124
  Receipt Date: 20250124
  Transmission Date: 20250408
  Serious: Yes (Life-Threatening, Hospitalization, Disabling)
  Sender: TEVA
  Company Number: DE-EMA-DD-20210723-zaviour_n-180021

PATIENT
  Age: 35 Year
  Sex: Female

DRUGS (3)
  1. PREDNISOLONE [Suspect]
     Active Substance: PREDNISOLONE
     Indication: Rash
     Route: 048
     Dates: end: 20060216
  2. NOVALGIN (METAMIZOLE SODIUM) [Suspect]
     Active Substance: METAMIZOLE SODIUM
     Indication: Post herpetic neuralgia
     Route: 048
     Dates: end: 20060216
  3. BRIVUDINE [Suspect]
     Active Substance: BRIVUDINE
     Indication: Herpes zoster
     Route: 048
     Dates: start: 20060119, end: 20060125

REACTIONS (4)
  - Acute hepatic failure [Unknown]
  - Rash [Unknown]
  - Skin discolouration [Unknown]
  - Pain [Unknown]

NARRATIVE: CASE EVENT DATE: 20060127
